FAERS Safety Report 6565363-X (Version None)
Quarter: 2010Q1

REPORT INFORMATION
  Report Type: 
  Country: None (occurrence: None)
  Receive Date: 20100201
  Receipt Date: 20100125
  Transmission Date: 20100710
  Serious: Yes (Other)
  Sender: FDA-Public Use
  Company Number: GXKR2010GB01168

PATIENT
  Age: 59 Year
  Sex: Female
  Weight: 69.09 kg

DRUGS (5)
  1. ALENDRONIC ACID (NGX) [Suspect]
     Indication: OSTEOPOROSIS
     Dosage: 1 DF, QW
     Route: 048
     Dates: start: 20091103, end: 20091125
  2. ADCAL-D3 [Concomitant]
     Dosage: 1 DF, BID
     Dates: start: 20091103
  3. MIGRALEVE [Concomitant]
     Dosage: AS NECESSARY
     Dates: end: 20091126
  4. PREDNISOLONE [Concomitant]
     Dosage: 1 DF, TID
     Dates: start: 20091028
  5. PREDNISOLONE [Concomitant]
     Dosage: 1 DF, TID
     Dates: start: 20091103

REACTIONS (1)
  - MIGRAINE [None]
